FAERS Safety Report 18016326 (Version 1)
Quarter: 2020Q3

REPORT INFORMATION
  Report Type: Spontaneous
  Country: ES (occurrence: ES)
  Receive Date: 20200714
  Receipt Date: 20200714
  Transmission Date: 20201103
  Serious: Yes (Other)
  Sender: FDA-Public Use
  Company Number: ES-ASTRAZENECA-2020SE86732

PATIENT
  Sex: Male

DRUGS (3)
  1. OMEPRAZOL [Suspect]
     Active Substance: OMEPRAZOLE
     Indication: INFANTILE SPITTING UP
     Dosage: IT STARTED WITH 1.5 ML A DAY. IT WAS UP TO 2 ML A DAY.
     Route: 048
     Dates: start: 20200407, end: 20200424
  2. OMEPRAZOL [Suspect]
     Active Substance: OMEPRAZOLE
     Indication: INFANTILE SPITTING UP
     Route: 048
     Dates: start: 20200601, end: 20200612
  3. OMEPRAZOL [Suspect]
     Active Substance: OMEPRAZOLE
     Indication: INFANTILE SPITTING UP
     Route: 048
     Dates: start: 20200424, end: 20200603

REACTIONS (1)
  - Hypertrichosis [Recovering/Resolving]

NARRATIVE: CASE EVENT DATE: 20200601
